FAERS Safety Report 10537537 (Version 2)
Quarter: 2014Q4

REPORT INFORMATION
  Report Type: Spontaneous
  Country: US (occurrence: None)
  Receive Date: 20141021
  Receipt Date: 20141119
  Transmission Date: 20150529
  Serious: Yes (Hospitalization)
  Sender: FDA-Public Use
  Company Number: 2014HINSPO0939

PATIENT
  Age: 34 Year
  Sex: Male

DRUGS (1)
  1. LEVETIRACETAM. [Suspect]
     Active Substance: LEVETIRACETAM
     Indication: SEIZURE
     Route: 048
     Dates: start: 20130304

REACTIONS (8)
  - Loss of consciousness [None]
  - Anticonvulsant drug level decreased [None]
  - Generalised tonic-clonic seizure [None]
  - Drug ineffective [None]
  - Unresponsive to stimuli [None]
  - Insomnia [None]
  - Confusional state [None]
  - Blood pressure increased [None]
